FAERS Safety Report 12659779 (Version 4)
Quarter: 2016Q4

REPORT INFORMATION
  Report Type: Spontaneous
  Country: US (occurrence: US)
  Receive Date: 20160817
  Receipt Date: 20161019
  Transmission Date: 20170207
  Serious: Yes (Other)
  Sender: FDA-Public Use
  Company Number: US-VERTEX PHARMACEUTICALS-2016-004630

PATIENT
  Age: 16 Year
  Sex: Male
  Weight: 71 kg

DRUGS (13)
  1. ORKAMBI [Suspect]
     Active Substance: IVACAFTOR\LUMACAFTOR
     Indication: CYSTIC FIBROSIS
     Dosage: 400MG/250MG BID
     Route: 048
     Dates: start: 20150811, end: 20160630
  2. VITAMIN D3 [Concomitant]
     Active Substance: CHOLECALCIFEROL
     Dosage: 2000 IU, BID
     Route: 048
     Dates: start: 20121003
  3. ALBUTEROL HFA [Concomitant]
     Active Substance: ALBUTEROL SULFATE
     Dosage: 2 PUFFS PRIOR TO HYPERTONIC SALINE/UP TO Q3H PRN
     Route: 055
     Dates: start: 20150416
  4. CREON [Concomitant]
     Active Substance: PANCRELIPASE AMYLASE\PANCRELIPASE LIPASE\PANCRELIPASE PROTEASE
     Dosage: 6 CAPSULES BEFORE MEALS, 2 CAPSULES BEFORE SNACKS
     Route: 048
     Dates: start: 20150903
  5. HYPERTONIC SALINE SOLUTION [Concomitant]
     Active Substance: SODIUM CHLORIDE
     Dosage: 1 VIAL BID
     Route: 055
     Dates: start: 20160526
  6. ORKAMBI [Suspect]
     Active Substance: IVACAFTOR\LUMACAFTOR
     Dosage: FULL DOSE
     Route: 048
     Dates: start: 20160920
  7. ALBUTEROL SULFATE. [Concomitant]
     Active Substance: ALBUTEROL SULFATE
     Dosage: 3ML QD/ EVERY 3-4 HRS NEBULIZED PRN
     Route: 055
     Dates: start: 20160416
  8. AZITHROMYCIN ANHYDROUS. [Concomitant]
     Active Substance: AZITHROMYCIN ANHYDROUS
     Dosage: 500MG EVERY M-W-F
     Route: 048
     Dates: start: 20151229
  9. LANSOPRAZOLE. [Concomitant]
     Active Substance: LANSOPRAZOLE
     Dosage: 30 MG, QD
     Route: 048
     Dates: start: 20151229
  10. PULMOZYME [Concomitant]
     Active Substance: DORNASE ALFA
     Dosage: 2.5 MG, QD
     Route: 055
     Dates: start: 20160317
  11. MULTIVITAMIN [Concomitant]
     Active Substance: VITAMINS
     Dosage: 2 - 1500 UNIT 800MCG CAPSULES QD
     Route: 048
     Dates: start: 20150416
  12. TOBI [Concomitant]
     Active Substance: TOBRAMYCIN
     Dosage: 4 CAPS BID, CYCLE ON/OFF EVERY 28 DAYS
     Route: 055
     Dates: start: 20160316
  13. URSODIOL. [Concomitant]
     Active Substance: URSODIOL
     Dosage: 250 MG, BID
     Route: 048
     Dates: start: 20151229

REACTIONS (1)
  - Liver function test increased [Recovered/Resolved]

NARRATIVE: CASE EVENT DATE: 20160627
